FAERS Safety Report 4276212-7 (Version None)
Quarter: 2004Q1

REPORT INFORMATION
  Report Type: 
  Country: None (occurrence: None)
  Receive Date: 20040121
  Receipt Date: 20030424
  Transmission Date: 20041129
  Serious: No
  Sender: FDA-Public Use
  Company Number: US-GLAXOSMITHKLINE-A0406112A

PATIENT
  Age: 43 Year
  Sex: Male

DRUGS (4)
  1. ZIAGEN [Suspect]
     Indication: HIV INFECTION
     Route: 048
  2. CRIXIVAN [Suspect]
     Indication: HIV INFECTION
     Route: 065
     Dates: start: 20030306
  3. NORVIR [Suspect]
     Indication: HIV INFECTION
     Route: 065
     Dates: start: 20030306
  4. EPIVIR [Concomitant]
     Indication: HIV INFECTION
     Route: 048

REACTIONS (1)
  - RASH GENERALISED [None]
